FAERS Safety Report 5265474-5 (Version None)
Quarter: 2007Q1

REPORT INFORMATION
  Report Type: 
  Country: None (occurrence: None)
  Receive Date: 20070314
  Receipt Date: 20070303
  Transmission Date: 20070707
  Serious: Yes (Other)
  Sender: FDA-Public Use
  Company Number: US-PFIZER INC-2007017137

PATIENT
  Sex: Female
  Weight: 81.6 kg

DRUGS (12)
  1. CHANTIX [Suspect]
     Indication: SMOKING CESSATION THERAPY
  2. GEODON [Interacting]
     Indication: BIPOLAR DISORDER
  3. GEODON [Interacting]
     Indication: SCHIZOPHRENIA
  4. ANTIPSYCHOTICS [Interacting]
  5. MOBAN [Interacting]
     Dates: start: 20060101, end: 20060101
  6. ZYPREXA [Concomitant]
  7. LAMICTAL [Concomitant]
  8. LORAZEPAM [Concomitant]
  9. PREVACID [Concomitant]
  10. COUMADIN [Concomitant]
  11. ZOCOR [Concomitant]
  12. EFFEXOR [Concomitant]

REACTIONS (11)
  - AGITATION [None]
  - ANXIETY [None]
  - BIPOLAR DISORDER [None]
  - BLOOD DISORDER [None]
  - DEPRESSION [None]
  - DIARRHOEA [None]
  - DRUG INTERACTION [None]
  - EMOTIONAL DISORDER [None]
  - IMPAIRED WORK ABILITY [None]
  - NERVOUSNESS [None]
  - SUSPICIOUSNESS [None]
